FAERS Safety Report 21010448 (Version 1)
Quarter: 2022Q2

REPORT INFORMATION
  Report Type: Spontaneous
  Country: NL (occurrence: NL)
  Receive Date: 20220627
  Receipt Date: 20220627
  Transmission Date: 20220721
  Serious: Yes (Other)
  Sender: FDA-Public Use
  Company Number: NL-002147023-NVSC2022NL130243

PATIENT
  Sex: Female

DRUGS (4)
  1. DASATINIB [Suspect]
     Active Substance: DASATINIB
     Indication: Chronic myeloid leukaemia
     Route: 065
     Dates: start: 201702
  2. DASATINIB [Suspect]
     Active Substance: DASATINIB
     Route: 065
     Dates: start: 202002
  3. DASATINIB [Suspect]
     Active Substance: DASATINIB
     Route: 065
     Dates: start: 202002
  4. PEGASYS [Concomitant]
     Active Substance: PEGINTERFERON ALFA-2A
     Indication: Product used for unknown indication
     Route: 065

REACTIONS (6)
  - Drug resistance [Unknown]
  - Thrombocytopenia [Unknown]
  - Chronic myeloid leukaemia recurrent [Unknown]
  - Hyperleukocytosis [Unknown]
  - Cytogenetic analysis abnormal [Unknown]
  - Drug intolerance [Unknown]

NARRATIVE: CASE EVENT DATE: 20191001
